FAERS Safety Report 18496996 (Version 4)
Quarter: 2020Q4

REPORT INFORMATION
  Report Type: Spontaneous
  Country: JP (occurrence: JP)
  Receive Date: 20201112
  Receipt Date: 20201224
  Transmission Date: 20210114
  Serious: Yes (Death, Hospitalization)
  Sender: FDA-Public Use
  Company Number: JP-ABBVIE-20K-087-3648676-00

PATIENT
  Age: 77 Year
  Sex: Male

DRUGS (3)
  1. VALSARTANA + ANLODIPINO [Concomitant]
     Indication: HYPERTENSION
  2. VALSARTANA + ANLODIPINO [Concomitant]
     Indication: CHRONIC KIDNEY DISEASE
  3. SKYRIZI [Suspect]
     Active Substance: RISANKIZUMAB-RZAA
     Indication: ERYTHRODERMIC PSORIASIS
     Route: 058
     Dates: start: 20191126, end: 20200317

REACTIONS (4)
  - Lymphoma [Unknown]
  - Herpes zoster [Unknown]
  - Acute kidney injury [Fatal]
  - Pneumonia bacterial [Unknown]

NARRATIVE: CASE EVENT DATE: 20200506
